FAERS Safety Report 24210885 (Version 3)
Quarter: 2024Q4

REPORT INFORMATION
  Report Type: Report from Study
  Country: CA (occurrence: CA)
  Receive Date: 20240814
  Receipt Date: 20241111
  Transmission Date: 20250115
  Serious: Yes (Hospitalization, Other)
  Sender: ABBVIE
  Company Number: CA-ABBVIE-5875884

PATIENT
  Age: 49 Year
  Sex: Male

DRUGS (3)
  1. RINVOQ [Suspect]
     Active Substance: UPADACITINIB
     Indication: Crohn^s disease
     Dosage: LAST ADMIN DATE: 2024
     Route: 048
     Dates: start: 202407
  2. RINVOQ [Suspect]
     Active Substance: UPADACITINIB
     Indication: Crohn^s disease
     Route: 048
     Dates: start: 20240103, end: 202407
  3. RINVOQ [Suspect]
     Active Substance: UPADACITINIB
     Indication: Crohn^s disease
     Dosage: FIRST ADMIN DATE: 2024
     Route: 048

REACTIONS (14)
  - Sepsis [Unknown]
  - Renal disorder [Not Recovered/Not Resolved]
  - Arthralgia [Unknown]
  - Dehydration [Unknown]
  - Hip surgery [Unknown]
  - Crohn^s disease [Unknown]
  - Clostridium difficile infection [Not Recovered/Not Resolved]
  - White blood cell count decreased [Unknown]
  - Peripheral swelling [Unknown]
  - Acne [Unknown]
  - Haemorrhoidal haemorrhage [Unknown]
  - Fluid retention [Unknown]
  - Harvey-Bradshaw index abnormal [Unknown]
  - Diarrhoea [Unknown]

NARRATIVE: CASE EVENT DATE: 20240101
